FAERS Safety Report 8376338-2 (Version None)
Quarter: 2012Q1

REPORT INFORMATION
  Report Type: 
  Country: None (occurrence: None)
  Receive Date: 20120323
  Receipt Date: 20110727
  Transmission Date: 20120608
  Serious: Yes (Other)
  Sender: FDA-Public Use
  Company Number: 163-21880-11063673

PATIENT
  Age: 67 Year
  Sex: Female

DRUGS (5)
  1. REVLIMID [Suspect]
     Indication: MULTIPLE MYELOMA
     Dosage: 10 MG, 1 IN 1 D, PO
     Route: 048
     Dates: start: 20110613, end: 20110706
  2. ATIVAN [Concomitant]
  3. OXYCONTIN [Concomitant]
  4. PERCOCET [Concomitant]
  5. ZOMETA [Concomitant]

REACTIONS (2)
  - PHARYNGEAL OEDEMA [None]
  - SKIN DISORDER [None]
